FAERS Safety Report 19819287 (Version 2)
Quarter: 2021Q3

REPORT INFORMATION
  Report Type: Spontaneous
  Country: SA (occurrence: DE)
  Receive Date: 20210913
  Receipt Date: 20210929
  Transmission Date: 20211014
  Serious: Yes (Hospitalization, Other)
  Sender: FDA-Public Use
  Company Number: SA-AUROBINDO-AUR-APL-2021-038388

PATIENT
  Age: 44 Year
  Sex: Male

DRUGS (16)
  1. LAMOTRIGINE. [Suspect]
     Active Substance: LAMOTRIGINE
     Indication: RASMUSSEN ENCEPHALITIS
     Dosage: 100 MILLIGRAM, ONCE A DAY
     Route: 065
  2. PREGABALIN. [Suspect]
     Active Substance: PREGABALIN
     Indication: STATUS EPILEPTICUS
     Dosage: 300 MILLIGRAM, ONCE A DAY
     Route: 065
  3. PHENYTOIN. [Suspect]
     Active Substance: PHENYTOIN
     Indication: STATUS EPILEPTICUS
     Dosage: 100 MILLIGRAM, ONCE A DAY
     Route: 065
  4. GABAPENTIN. [Suspect]
     Active Substance: GABAPENTIN
     Indication: STATUS EPILEPTICUS
     Dosage: UNK
     Route: 065
  5. LAMOTRIGINE. [Suspect]
     Active Substance: LAMOTRIGINE
     Indication: STATUS EPILEPTICUS
     Dosage: 50 MILLIGRAM, ONCE A DAY
     Route: 065
  6. PERAMPANEL [Concomitant]
     Active Substance: PERAMPANEL
     Indication: STATUS EPILEPTICUS
     Dosage: 4 MILLIGRAM, ONCE A DAY
     Route: 065
  7. LEVETIRACETAM. [Suspect]
     Active Substance: LEVETIRACETAM
     Indication: STATUS EPILEPTICUS
     Dosage: 300 MILLIGRAM, ONCE A DAY
     Route: 065
  8. METHSUXIMIDE [Suspect]
     Active Substance: METHSUXIMIDE
     Indication: STATUS EPILEPTICUS
     Dosage: UNK
     Route: 065
  9. VALPROATE [Suspect]
     Active Substance: VALPROIC ACID
     Indication: STATUS EPILEPTICUS
     Dosage: 2400 MILLIGRAM, ONCE A DAY
     Route: 065
  10. CLONAZEPAM. [Suspect]
     Active Substance: CLONAZEPAM
     Indication: STATUS EPILEPTICUS
     Dosage: 3 MILLIGRAM, ONCE A DAY
     Route: 065
  11. LEVETIRACETAM. [Suspect]
     Active Substance: LEVETIRACETAM
     Indication: RASMUSSEN ENCEPHALITIS
  12. CLONAZEPAM. [Suspect]
     Active Substance: CLONAZEPAM
     Indication: RASMUSSEN ENCEPHALITIS
     Dosage: 2 MILLIGRAM, ONCE A DAY
     Route: 065
  13. VALPROATE [Suspect]
     Active Substance: VALPROIC ACID
     Indication: RASMUSSEN ENCEPHALITIS
  14. PERAMPANEL [Concomitant]
     Active Substance: PERAMPANEL
     Indication: RASMUSSEN ENCEPHALITIS
     Dosage: 6 MILLIGRAM, ONCE A DAY
     Route: 065
  15. PREGABALIN. [Suspect]
     Active Substance: PREGABALIN
     Indication: RASMUSSEN ENCEPHALITIS
  16. CLOBAZAM. [Suspect]
     Active Substance: CLOBAZAM
     Indication: STATUS EPILEPTICUS
     Dosage: UNK
     Route: 065

REACTIONS (4)
  - No adverse event [Unknown]
  - Drug level increased [Unknown]
  - Thrombocytopenia [Unknown]
  - Treatment failure [Unknown]
